FAERS Safety Report 11325924 (Version 3)
Quarter: 2015Q3

REPORT INFORMATION
  Report Type: Spontaneous
  Country: CA (occurrence: CA)
  Receive Date: 20150731
  Receipt Date: 20150806
  Transmission Date: 20151125
  Serious: Yes (Other)
  Sender: FDA-Public Use
  Company Number: CA-ROCHE-1615891

PATIENT
  Sex: Female

DRUGS (1)
  1. RITUXAN [Suspect]
     Active Substance: RITUXIMAB
     Indication: MYOSITIS
     Route: 065

REACTIONS (3)
  - Dystonia [Recovered/Resolved]
  - Muscle tightness [Recovered/Resolved]
  - Hypertonia [Recovered/Resolved]
